FAERS Safety Report 16319661 (Version 1)
Quarter: 2019Q2

REPORT INFORMATION
  Report Type: Spontaneous
  Country: DE (occurrence: DE)
  Receive Date: 20190516
  Receipt Date: 20190516
  Transmission Date: 20190711
  Serious: Yes (Hospitalization, Other)
  Sender: FDA-Public Use
  Company Number: DE-TEVA-2019-DE-1049122

PATIENT
  Sex: Female

DRUGS (1)
  1. COTRIM E-RATIOPHARM 480 MG/5 ML SAFT [Suspect]
     Active Substance: SULFAMETHOXAZOLE\TRIMETHOPRIM
     Indication: CYSTITIS NONINFECTIVE
     Dates: start: 201812

REACTIONS (9)
  - Weight decreased [Unknown]
  - Illusion [Unknown]
  - Mobility decreased [Unknown]
  - Blood count abnormal [Unknown]
  - Decreased appetite [Unknown]
  - Abdominal discomfort [Unknown]
  - Acute psychosis [Unknown]
  - Rash generalised [Unknown]
  - Diarrhoea [Unknown]

NARRATIVE: CASE EVENT DATE: 201812
